FAERS Safety Report 8359776-3 (Version None)
Quarter: 2012Q2

REPORT INFORMATION
  Report Type: 
  Country: None (occurrence: None)
  Receive Date: 20120515
  Receipt Date: 20120507
  Transmission Date: 20120825
  Serious: Yes (Hospitalization)
  Sender: FDA-Public Use
  Company Number: PHHY2012FR040520

PATIENT
  Sex: Female

DRUGS (2)
  1. TRILEPTAL [Suspect]
     Indication: CONVULSION
     Dosage: 23 MG/KG/DAY / 150 MG 3 TIMES PER DAY
     Dates: start: 20120310, end: 20120312
  2. TRILEPTAL [Suspect]
     Dosage: 22 MG/KG/DAY
     Dates: start: 20120313, end: 20120319

REACTIONS (12)
  - RASH VESICULAR [None]
  - PYREXIA [None]
  - PLATELET COUNT DECREASED [None]
  - RETICULOCYTE COUNT INCREASED [None]
  - RASH [None]
  - BLOOD IRON DECREASED [None]
  - PRURITUS [None]
  - C-REACTIVE PROTEIN INCREASED [None]
  - ANAEMIA [None]
  - ASPARTATE AMINOTRANSFERASE INCREASED [None]
  - EOSINOPHIL COUNT INCREASED [None]
  - LIPASE INCREASED [None]
